FAERS Safety Report 11135830 (Version 1)
Quarter: 2015Q2

REPORT INFORMATION
  Report Type: Spontaneous
  Country: CH (occurrence: CH)
  Receive Date: 20150526
  Receipt Date: 20150526
  Transmission Date: 20150821
  Serious: Yes (Hospitalization)
  Sender: FDA-Public Use
  Company Number: CH-PFIZER INC-2015171424

PATIENT
  Age: 13 Year
  Sex: Female

DRUGS (3)
  1. ZOLOFT [Suspect]
     Active Substance: SERTRALINE HYDROCHLORIDE
     Dosage: 50 MG, 30-40 TABLETS
     Route: 048
     Dates: start: 20141201, end: 20141201
  2. ALGIFOR [Suspect]
     Active Substance: IBUPROFEN
     Dosage: 400 MG, 1 PACK (EXACT AMOUNT OF TABLETS UNKNOWN, MAX 10 TABLETS)
     Route: 048
     Dates: start: 20141201, end: 20141201
  3. PREDNISONE. [Suspect]
     Active Substance: PREDNISONE
     Dosage: 2 PACKS (EXACT DOSAGE UNKNOWN)
     Route: 048
     Dates: start: 20141201, end: 20141201

REACTIONS (7)
  - Serotonin syndrome [Recovered/Resolved]
  - Intentional overdose [Recovered/Resolved]
  - Pyrexia [Recovered/Resolved]
  - Tachycardia [Recovered/Resolved]
  - Mydriasis [Recovered/Resolved]
  - Psychomotor skills impaired [Recovered/Resolved]
  - Hyperreflexia [Recovered/Resolved]

NARRATIVE: CASE EVENT DATE: 20141201
